FAERS Safety Report 4364208-6 (Version None)
Quarter: 2004Q2

REPORT INFORMATION
  Report Type: 
  Country: None (occurrence: None)
  Receive Date: 20040519
  Receipt Date: 20040507
  Transmission Date: 20050107
  Serious: Yes (Hospitalization)
  Sender: FDA-Public Use
  Company Number: S04-USA-02686-01

PATIENT
  Age: 15 Year
  Sex: Female

DRUGS (6)
  1. LEXAPRO [Suspect]
     Indication: DEPRESSION
     Dosage: 10 MG QD PO
     Route: 048
     Dates: start: 20040213, end: 20040303
  2. LEXAPRO [Suspect]
     Indication: DEPRESSION
     Dosage: 20 MG QD PO
     Route: 048
     Dates: start: 20040304, end: 20040317
  3. LEXAPRO [Suspect]
     Indication: DEPRESSION
     Dosage: 30 MG QD PO
     Route: 048
     Dates: start: 20040318
  4. RISPERIDONE [Suspect]
     Indication: DEPRESSION
     Dosage: 0.5 MG QD PO
     Route: 048
     Dates: start: 20040213, end: 20040303
  5. RISPERIDONE [Suspect]
     Indication: DEPRESSION
     Dosage: 1 MG QD PO
     Route: 048
     Dates: start: 20040304, end: 20040317
  6. RISPERIDONE [Suspect]
     Indication: DEPRESSION
     Dosage: 1.5 MG QD PO
     Route: 048
     Dates: start: 20040318

REACTIONS (2)
  - SELF INJURIOUS BEHAVIOUR [None]
  - SUICIDAL IDEATION [None]
